FAERS Safety Report 21755260 (Version 1)
Quarter: 2022Q4

REPORT INFORMATION
  Report Type: Spontaneous
  Country: US (occurrence: US)
  Receive Date: 20221220
  Receipt Date: 20221220
  Transmission Date: 20230113
  Serious: No
  Sender: FDA-Public Use
  Company Number: US-RECKITT BENCKISER HEALTHCARE INT LIMITED-RB-098621-2022

PATIENT
  Age: 33 Year
  Sex: Female

DRUGS (1)
  1. DELSYM [Suspect]
     Active Substance: DEXTROMETHORPHAN
     Indication: COVID-19
     Dosage: UNK
     Route: 048
     Dates: start: 20220617

REACTIONS (2)
  - Product use in unapproved indication [Unknown]
  - Accidental overdose [Unknown]

NARRATIVE: CASE EVENT DATE: 20220617
